FAERS Safety Report 24640929 (Version 1)
Quarter: 2024Q4

REPORT INFORMATION
  Report Type: Report from Study
  Country: ES (occurrence: ES)
  Receive Date: 20241120
  Receipt Date: 20241120
  Transmission Date: 20250115
  Serious: Yes (Other)
  Sender: Y-MABS THERAPEUTICS
  Company Number: ES-Y-MABS THERAPEUTICS, INC.-COM2021-ES-000490

PATIENT

DRUGS (15)
  1. NAXITAMAB [Suspect]
     Active Substance: NAXITAMAB
     Indication: Neuroblastoma
     Dosage: CYCLE 1, DOSE 1
     Route: 042
     Dates: start: 20210823, end: 20210823
  2. NAXITAMAB [Suspect]
     Active Substance: NAXITAMAB
     Dosage: CYCLE 1, DOSE 2
     Route: 042
     Dates: start: 20210825, end: 20210825
  3. NAXITAMAB [Suspect]
     Active Substance: NAXITAMAB
     Dosage: CYCLE 1, DOSE 3
     Route: 042
     Dates: start: 20210827, end: 20210827
  4. NAXITAMAB [Suspect]
     Active Substance: NAXITAMAB
     Dosage: CYCLE 2, DOSE 1
     Route: 042
     Dates: start: 20210920, end: 20210920
  5. NAXITAMAB [Suspect]
     Active Substance: NAXITAMAB
     Dosage: CYCLE 2, DOSE 2
     Route: 042
     Dates: start: 20210922, end: 20210922
  6. NAXITAMAB [Suspect]
     Active Substance: NAXITAMAB
     Dosage: UNK
  7. GRANULOCYTE-MACROPHAGE COLONY-STIMULATING FACTOR [Suspect]
     Active Substance: GRANULOCYTE-MACROPHAGE COLONY-STIMULATING FACTOR
     Indication: Neuroblastoma
     Dosage: CYCLE 1, DOSE 1
     Route: 058
     Dates: start: 20210818, end: 20210818
  8. GRANULOCYTE-MACROPHAGE COLONY-STIMULATING FACTOR [Suspect]
     Active Substance: GRANULOCYTE-MACROPHAGE COLONY-STIMULATING FACTOR
     Dosage: CYCLE 2, DOSE 1 (250 ?G/M2)
     Route: 058
     Dates: start: 20210915, end: 20210915
  9. GRANULOCYTE-MACROPHAGE COLONY-STIMULATING FACTOR [Suspect]
     Active Substance: GRANULOCYTE-MACROPHAGE COLONY-STIMULATING FACTOR
     Dosage: CYCLE 2, DOSE 2 (250 ?G/M2)
     Route: 058
     Dates: start: 20210916, end: 20210916
  10. GRANULOCYTE-MACROPHAGE COLONY-STIMULATING FACTOR [Suspect]
     Active Substance: GRANULOCYTE-MACROPHAGE COLONY-STIMULATING FACTOR
     Dosage: CYCLE 2, DOSE 3 (250 ?G/M2)
     Route: 058
     Dates: start: 20210917, end: 20210917
  11. GRANULOCYTE-MACROPHAGE COLONY-STIMULATING FACTOR [Suspect]
     Active Substance: GRANULOCYTE-MACROPHAGE COLONY-STIMULATING FACTOR
     Dosage: CYCLE 2, DOSE 4 (250 ?G/M2)
     Route: 058
     Dates: start: 20210918, end: 20210918
  12. GRANULOCYTE-MACROPHAGE COLONY-STIMULATING FACTOR [Suspect]
     Active Substance: GRANULOCYTE-MACROPHAGE COLONY-STIMULATING FACTOR
     Dosage: CYCLE 2, DOSE 5 (250 ?G/M2)
     Route: 058
     Dates: start: 20210919, end: 20210919
  13. GRANULOCYTE-MACROPHAGE COLONY-STIMULATING FACTOR [Suspect]
     Active Substance: GRANULOCYTE-MACROPHAGE COLONY-STIMULATING FACTOR
     Dosage: CYCLE 2, DOSE 6 (500 ?G/M2)
     Route: 058
     Dates: start: 20210920, end: 20210920
  14. GABAPENTIN [Concomitant]
     Active Substance: GABAPENTIN
     Indication: Product used for unknown indication
     Dosage: 1.5 MILLILITER, TID
  15. FISH OIL [Concomitant]
     Active Substance: FISH OIL
     Indication: Product used for unknown indication
     Route: 048

REACTIONS (1)
  - Laryngospasm [Recovered/Resolved]

NARRATIVE: CASE EVENT DATE: 20210920
